FAERS Safety Report 5906987-X (Version None)
Quarter: 2008Q4

REPORT INFORMATION
  Report Type: 
  Country: None (occurrence: None)
  Receive Date: 20081003
  Receipt Date: 20080325
  Transmission Date: 20090506
  Serious: Yes (Other)
  Sender: FDA-Public Use
  Company Number: US-RANBAXY-2008RR-14044

PATIENT

DRUGS (8)
  1. HYDROCODONE BITARTRATE AND ACETAMINOPHEN [Suspect]
     Indication: FIBROMYALGIA
  2. BUTALBITAL [Suspect]
     Indication: PAIN
     Dosage: UNK
  3. CODEINE PHOSPHATE [Suspect]
     Indication: PAIN
     Dosage: UNK
  4. ACETAMINOPHEN [Suspect]
     Indication: PAIN
     Dosage: UNK
  5. BUTORPHANOL [Suspect]
     Dosage: UNK
     Dates: start: 19940101
  6. CAFERGOT [Suspect]
     Dosage: UNK
     Dates: start: 19950101
  7. OXYCODONE HCL [Suspect]
  8. MORPHINE SULFATE INJ [Suspect]

REACTIONS (1)
  - HEADACHE [None]
